FAERS Safety Report 6432681-5 (Version None)
Quarter: 2009Q4

REPORT INFORMATION
  Report Type: 
  Country: None (occurrence: None)
  Receive Date: 20091109
  Receipt Date: 20091030
  Transmission Date: 20100525
  Serious: Yes (Other)
  Sender: FDA-Public Use
  Company Number: GXKR2009NO09601

PATIENT
  Sex: Female

DRUGS (4)
  1. RANITIDINE HCL [Suspect]
     Indication: GASTRITIS
     Dosage: 300 MG/DAY
     Route: 048
     Dates: start: 20090701, end: 20090728
  2. SOMAC [Interacting]
     Indication: GASTRITIS
     Dosage: UNK
  3. CENTYL [Concomitant]
     Indication: HYPERTENSION
  4. TRIOBE [Concomitant]
     Indication: HYPOVITAMINOSIS
     Dosage: UNK
     Dates: end: 20090807

REACTIONS (6)
  - CONFUSIONAL STATE [None]
  - FATIGUE [None]
  - HALLUCINATION, VISUAL [None]
  - LISTLESS [None]
  - NEUROLOGICAL SYMPTOM [None]
  - VISION BLURRED [None]
